FAERS Safety Report 5587632-2 (Version None)
Quarter: 2008Q1

REPORT INFORMATION
  Report Type: 
  Country: None (occurrence: None)
  Receive Date: 20080108
  Receipt Date: 20071226
  Transmission Date: 20080703
  Serious: Yes (Other)
  Sender: FDA-Public Use
  Company Number: S07-USA-06226-01

PATIENT
  Age: 36 Year
  Sex: Female
  Weight: 53.5244 kg

DRUGS (8)
  1. LEXAPRO [Suspect]
     Indication: POST-TRAUMATIC STRESS DISORDER
     Dosage: 20 MG QD PO
     Route: 048
     Dates: start: 20040101, end: 20071201
  2. LEXAPRO [Suspect]
     Indication: POST-TRAUMATIC STRESS DISORDER
     Dosage: 5 MG QD PO
     Route: 048
     Dates: start: 20071201
  3. LEXAPRO [Suspect]
     Indication: POST-TRAUMATIC STRESS DISORDER
     Dosage: 10 MG QD PO
     Route: 048
     Dates: start: 20040101, end: 20040101
  4. CLONAZEPAM [Concomitant]
  5. AMBIEN [Concomitant]
  6. METAMUCIL (PSYLLIUM) [Concomitant]
  7. PROGESTERONE [Concomitant]
  8. PRENATAL VITAMIN WITH DHA (DOCOSAHEXAENOIC ACID) [Concomitant]

REACTIONS (4)
  - ABORTION THREATENED [None]
  - DRUG EXPOSURE DURING PREGNANCY [None]
  - FOETAL HEART RATE DECREASED [None]
  - PREGNANCY [None]
